FAERS Safety Report 5446372-0 (Version None)
Quarter: 2007Q3

REPORT INFORMATION
  Report Type: 
  Country: None (occurrence: None)
  Receive Date: 20070907
  Receipt Date: 20070829
  Transmission Date: 20080115
  Serious: Yes (Hospitalization)
  Sender: FDA-Public Use
  Company Number: B0485882A

PATIENT
  Age: 29 Year
  Sex: Female

DRUGS (3)
  1. ZYBAN [Suspect]
     Indication: DRUG USE FOR UNKNOWN INDICATION
     Dosage: 20TAB SEE DOSAGE TEXT
     Route: 048
  2. CHARCOAL [Concomitant]
  3. DIAZEPAM [Concomitant]
     Route: 042

REACTIONS (6)
  - AGITATION [None]
  - CONVULSION [None]
  - HALLUCINATION [None]
  - MYDRIASIS [None]
  - OVERDOSE [None]
  - TACHYCARDIA [None]
